FAERS Safety Report 5644374-2 (Version None)
Quarter: 2008Q1

REPORT INFORMATION
  Report Type: 
  Country: None (occurrence: None)
  Receive Date: 20080229
  Receipt Date: 20080222
  Transmission Date: 20080703
  Serious: Yes (Death, Other)
  Sender: FDA-Public Use
  Company Number: US-BRISTOL-MYERS SQUIBB COMPANY-13983879

PATIENT
  Sex: Female

DRUGS (3)
  1. DEFINITY [Suspect]
     Indication: ECHOCARDIOGRAM
     Dosage: THERAPY DURATION(UNK-ABOUT 2002-2003)
     Route: 042
     Dates: start: 20020101, end: 20030101
  2. LEVOPHED [Concomitant]
  3. DOBUTAMINE [Concomitant]

REACTIONS (2)
  - CARDIO-RESPIRATORY ARREST [None]
  - HAEMATOCHEZIA [None]
